APPROVED DRUG PRODUCT: PREDNISOLONE
Active Ingredient: PREDNISOLONE
Strength: 15MG/5ML
Dosage Form/Route: SOLUTION;ORAL
Application: A040192 | Product #001
Applicant: WE PHARMACEUTICALS INC
Approved: May 28, 1998 | RLD: No | RS: No | Type: DISCN